FAERS Safety Report 14669597 (Version 4)
Quarter: 2018Q2

REPORT INFORMATION
  Report Type: Spontaneous
  Country: US (occurrence: US)
  Receive Date: 20180322
  Receipt Date: 20180417
  Transmission Date: 20180711
  Serious: Yes (Hospitalization, Other)
  Sender: FDA-Public Use
  Company Number: US-GLAXOSMITHKLINE-US2018GSK047960

PATIENT
  Sex: Female

DRUGS (1)
  1. BENLYSTA [Suspect]
     Active Substance: BELIMUMAB
     Indication: SYSTEMIC LUPUS ERYTHEMATOSUS
     Dosage: UNK
     Route: 058
     Dates: start: 20180303

REACTIONS (12)
  - Mechanical ventilation [Unknown]
  - Malaise [Unknown]
  - Ear infection [Unknown]
  - Sinusitis [Unknown]
  - Feeling abnormal [Unknown]
  - Laryngeal disorder [Unknown]
  - Throat tightness [Unknown]
  - Heart rate decreased [Unknown]
  - Hypersensitivity [Unknown]
  - Vocal cord disorder [Unknown]
  - Upper airway obstruction [Unknown]
  - Thinking abnormal [Unknown]

NARRATIVE: CASE EVENT DATE: 201803
